FAERS Safety Report 20523812 (Version 1)
Quarter: 2022Q1

REPORT INFORMATION
  Report Type: Spontaneous
  Country: US (occurrence: US)
  Receive Date: 20220228
  Receipt Date: 20220228
  Transmission Date: 20220423
  Serious: No
  Sender: FDA-Public Use
  Company Number: US-IGSA-BIG0015938

PATIENT
  Age: 73 Year
  Sex: Female
  Weight: 117 kg

DRUGS (39)
  1. PROLASTIN-C LIQUID [Suspect]
     Active Substance: .ALPHA.1-PROTEINASE INHIBITOR HUMAN
     Indication: Alpha-1 antitrypsin deficiency
     Dosage: 7020 MILLIGRAM, Q.WK.
     Route: 042
     Dates: start: 20180831
  2. PROLASTIN-C LIQUID [Suspect]
     Active Substance: .ALPHA.1-PROTEINASE INHIBITOR HUMAN
     Dosage: 7020 MILLIGRAM, Q.WK.
     Route: 042
     Dates: start: 20211027
  3. ZOFRAN [Concomitant]
     Active Substance: ONDANSETRON HYDROCHLORIDE
     Indication: Premedication
     Dosage: UNK
     Dates: start: 20211027
  4. METOPROLOL SUCCINATE [Concomitant]
     Active Substance: METOPROLOL SUCCINATE
  5. FLUTICASONE PROPIONATE [Concomitant]
     Active Substance: FLUTICASONE PROPIONATE
  6. FERROUS GLUCONATE [Concomitant]
     Active Substance: FERROUS GLUCONATE
  7. FASENRA [Concomitant]
     Active Substance: BENRALIZUMAB
  8. ESTRACE [Concomitant]
     Active Substance: ESTRADIOL
  9. VITAMINS [Concomitant]
     Active Substance: VITAMINS
  10. CYCLOBENZAPRINE HYDROCHLORIDE [Concomitant]
     Active Substance: CYCLOBENZAPRINE HYDROCHLORIDE
  11. CYANOCOBALAMIN [Concomitant]
     Active Substance: CYANOCOBALAMIN
  12. COENZYME Q10 [Concomitant]
     Active Substance: DIETARY SUPPLEMENT\UBIDECARENONE
  13. XARELTO [Concomitant]
     Active Substance: RIVAROXABAN
  14. DICLOFENAC DIETHYLAMINE [Concomitant]
     Active Substance: DICLOFENAC DIETHYLAMINE
  15. VICTOZA [Concomitant]
     Active Substance: LIRAGLUTIDE
  16. PROCHLORPERAZINE MALEATE [Concomitant]
     Active Substance: PROCHLORPERAZINE MALEATE
  17. PREDNISONE [Concomitant]
     Active Substance: PREDNISONE
  18. PRAVASTATIN SODIUM [Concomitant]
     Active Substance: PRAVASTATIN SODIUM
  19. ONDANSETRON HCL [Concomitant]
     Active Substance: ONDANSETRON HYDROCHLORIDE
  20. NITROFURANTOIN MACROCRYSTALS [Concomitant]
     Active Substance: NITROFURANTOIN
  21. MONTELUKAST SODIUM [Concomitant]
     Active Substance: MONTELUKAST SODIUM
  22. LEVEMIR [Concomitant]
     Active Substance: INSULIN DETEMIR
  23. HUMALOG [Concomitant]
     Active Substance: INSULIN LISPRO
  24. VITAMIN D3 [Concomitant]
     Active Substance: CHOLECALCIFEROL
  25. BREO ELLIPTA [Concomitant]
     Active Substance: FLUTICASONE FUROATE\VILANTEROL TRIFENATATE
  26. B-COMPLEX [AMINOBENZOIC ACID;CALCIUM PANTOTHENATE;CYANOCOBALAMIN;NICOT [Concomitant]
  27. ACETAMINOPHEN AND CODEINE [Concomitant]
     Active Substance: ACETAMINOPHEN\CODEINE PHOSPHATE
  28. PROAIR HFA [Concomitant]
     Active Substance: ALBUTEROL SULFATE
  29. ALBUTEROL SULFATE [Concomitant]
     Active Substance: ALBUTEROL SULFATE
  30. SPIRIVA [Concomitant]
     Active Substance: TIOTROPIUM BROMIDE MONOHYDRATE
  31. MORPHINE SULFATE [Concomitant]
     Active Substance: MORPHINE SULFATE
  32. NEXIUM [Concomitant]
     Active Substance: ESOMEPRAZOLE MAGNESIUM
  33. GLUCOPHAGE [Concomitant]
     Active Substance: METFORMIN HYDROCHLORIDE
  34. LASIX [Concomitant]
     Active Substance: FUROSEMIDE
  35. PROCARDIA [Concomitant]
     Active Substance: NIFEDIPINE
  36. COZAAR [Concomitant]
     Active Substance: LOSARTAN POTASSIUM
  37. LEXAPRO [Concomitant]
     Active Substance: ESCITALOPRAM OXALATE
  38. VITAMIN D NOS [Concomitant]
     Active Substance: VITAMIN D NOS
  39. VITAMIN D3 [Concomitant]
     Active Substance: CHOLECALCIFEROL

REACTIONS (5)
  - Fatigue [Not Recovered/Not Resolved]
  - Myalgia [Not Recovered/Not Resolved]
  - Nausea [Not Recovered/Not Resolved]
  - Urinary tract infection [Recovering/Resolving]
  - Dyspnoea [Not Recovered/Not Resolved]

NARRATIVE: CASE EVENT DATE: 20211027
